FAERS Safety Report 7638274-6 (Version None)
Quarter: 2011Q3

REPORT INFORMATION
  Report Type: 
  Country: None (occurrence: None)
  Receive Date: 20110727
  Receipt Date: 20110719
  Transmission Date: 20111222
  Serious: Yes (Hospitalization)
  Sender: FDA-Public Use
  Company Number: ES-BRISTOL-MYERS SQUIBB COMPANY-15924582

PATIENT
  Age: 69 Year
  Sex: Male

DRUGS (1)
  1. MITOMYCIN [Suspect]
     Indication: BLADDER CANCER
     Dosage: INJ
     Route: 040
     Dates: start: 20110614, end: 20110707

REACTIONS (4)
  - HYPOTENSION [None]
  - ANURIA [None]
  - VOMITING [None]
  - PYREXIA [None]
